FAERS Safety Report 10954693 (Version 1)
Quarter: 2015Q1

REPORT INFORMATION
  Report Type: Spontaneous
  Country: DK (occurrence: GB)
  Receive Date: 20150325
  Receipt Date: 20150325
  Transmission Date: 20150721
  Serious: Yes (Other)
  Sender: FDA-Public Use
  Company Number: GB-FRI-1000075410

PATIENT
  Age: 37 Year
  Sex: Female
  Weight: 63.5 kg

DRUGS (2)
  1. CITALOPRAM [Suspect]
     Active Substance: CITALOPRAM HYDROBROMIDE
     Indication: ANXIETY
     Dosage: 10 MG ONCE DAILY
     Route: 048
     Dates: start: 20150220, end: 20150227
  2. CITALOPRAM [Suspect]
     Active Substance: CITALOPRAM HYDROBROMIDE
     Dosage: 20 MG ONCE DAILY
     Route: 048
     Dates: start: 20150228, end: 20150228

REACTIONS (1)
  - Sensory disturbance [Recovered/Resolved]

NARRATIVE: CASE EVENT DATE: 20150228
